FAERS Safety Report 7636546-2 (Version None)
Quarter: 2011Q3

REPORT INFORMATION
  Report Type: 
  Country: None (occurrence: None)
  Receive Date: 20110719
  Receipt Date: 20110704
  Transmission Date: 20111222
  Serious: Yes (Life-Threatening, Other)
  Sender: FDA-Public Use
  Company Number: 2011AT000149

PATIENT
  Sex: Male

DRUGS (2)
  1. INSULIN [Concomitant]
  2. EDEX [Suspect]
     Indication: ERECTILE DYSFUNCTION
     Dosage: 20 UG;TIW;ICAN
     Route: 017

REACTIONS (4)
  - DISEASE RECURRENCE [None]
  - OVERDOSE [None]
  - DEPRESSION [None]
  - SUICIDE ATTEMPT [None]
